FAERS Safety Report 9171007 (Version 2)
Quarter: 2013Q2

REPORT INFORMATION
  Report Type: Spontaneous
  Country: US (occurrence: US)
  Receive Date: 20130319
  Receipt Date: 20130517
  Transmission Date: 20140414
  Serious: No
  Sender: FDA-Public Use
  Company Number: US-PFIZER INC-2013089077

PATIENT
  Age: 50 Year
  Sex: Female
  Weight: 61.22 kg

DRUGS (5)
  1. XELJANZ [Suspect]
     Indication: RHEUMATOID ARTHRITIS
     Dosage: 5 MG, 2X/DAY
     Route: 048
     Dates: start: 20130201, end: 20130316
  2. XELJANZ [Suspect]
     Dosage: 5 MG, 2X/DAY
     Route: 048
     Dates: start: 20130325
  3. ADVIL [Concomitant]
     Dosage: UNK
  4. SUDAFED [Concomitant]
     Indication: SEASONAL ALLERGY
     Dosage: UNK, AS NEEDED
  5. ZYRTEC [Concomitant]
     Indication: SEASONAL ALLERGY
     Dosage: UNK, AS NEEDED

REACTIONS (2)
  - Herpes zoster [Recovering/Resolving]
  - Drug ineffective [Unknown]
